FAERS Safety Report 5522904-9 (Version None)
Quarter: 2007Q4

REPORT INFORMATION
  Report Type: 
  Country: None (occurrence: None)
  Receive Date: 20071116
  Receipt Date: 20071108
  Transmission Date: 20080405
  Serious: Yes (Hospitalization)
  Sender: FDA-Public Use
  Company Number: 230071J07USA

PATIENT
  Age: 61 Year
  Sex: Female
  Weight: 86.1834 kg

DRUGS (4)
  1. REBIF [Suspect]
     Indication: MULTIPLE SCLEROSIS
     Dosage: 44 MCG, 3 IN 1 WEEKS, SUBCUTANEOUS
     Route: 058
     Dates: start: 20031114
  2. TOPROL-XL [Concomitant]
  3. RELAFEN [Concomitant]
  4. PAIN PATCH (ANALGESICS) [Concomitant]

REACTIONS (2)
  - ANKLE FRACTURE [None]
  - FALL [None]
